FAERS Safety Report 9564491 (Version 2)
Quarter: 2014Q1

REPORT INFORMATION
  Report Type: Spontaneous
  Country: FR (occurrence: FR)
  Receive Date: 20130930
  Receipt Date: 20140303
  Transmission Date: 20141002
  Serious: Yes (Hospitalization)
  Sender: FDA-Public Use
  Company Number: FR-MERCK-1309FRA009545

PATIENT
  Age: 89 Year
  Sex: Male

DRUGS (9)
  1. AERIUS [Suspect]
     Dosage: 5 MG, QD
     Route: 048
     Dates: end: 20130526
  2. AUGMENTIN [Suspect]
     Dosage: UNK
     Route: 048
     Dates: start: 20130513, end: 20130523
  3. CRESTOR [Suspect]
     Dosage: 5 MG, QD
     Route: 048
     Dates: end: 20130524
  4. DAFALGAN [Suspect]
     Dosage: 1 G, BID
     Route: 048
     Dates: end: 20130524
  5. LAMALINE (NEW FORMULA) [Suspect]
     Dosage: 2 DF, QD
     Route: 048
     Dates: end: 20130524
  6. LOPRIL [Suspect]
     Dosage: 25 MG, QD
     Route: 048
     Dates: end: 20130524
  7. ATARAX (ALPRAZOLAM) [Suspect]
     Dosage: 25 MG, QD
     Route: 048
     Dates: end: 20130524
  8. LASILIX SPECIAL [Concomitant]
     Dosage: UNK
     Route: 048
  9. KAYEXALATE [Concomitant]
     Dosage: 15 G, QD
     Route: 048
     Dates: end: 20130529

REACTIONS (3)
  - Cholestasis [Recovering/Resolving]
  - General physical health deterioration [Recovered/Resolved]
  - Inflammation [Recovered/Resolved]
